FAERS Safety Report 5870886-2 (Version None)
Quarter: 2008Q3

REPORT INFORMATION
  Report Type: 
  Country: None (occurrence: None)
  Receive Date: 20080904
  Receipt Date: 20080901
  Transmission Date: 20090109
  Serious: Yes (Life-Threatening)
  Sender: FDA-Public Use
  Company Number: JP-BAYER-200810199BYL

PATIENT
  Age: 82 Year
  Sex: Female

DRUGS (2)
  1. ASPIRIN [Suspect]
     Route: 048
  2. LEVOTHYROXINE SODIUM [Concomitant]
     Route: 048

REACTIONS (3)
  - EPISTAXIS [None]
  - MELAENA [None]
  - THROMBOCYTOPENIA [None]
